FAERS Safety Report 16688842 (Version 1)
Quarter: 2019Q4

REPORT INFORMATION
  Report Type: Spontaneous
  Country: US (occurrence: US)
  Receive Date: 20190809
  Receipt Date: 20190809
  Transmission Date: 20200122
  Serious: Yes (Hospitalization, Disabling)
  Sender: FDA-Public Use
  Company Number: None

PATIENT
  Age: 28 Year
  Sex: Male
  Weight: 81 kg

DRUGS (1)
  1. PROPECIA [Suspect]
     Active Substance: FINASTERIDE
     Indication: ALOPECIA
     Dosage: ?          QUANTITY:30 TABLET(S);?
     Route: 048
     Dates: start: 20180506, end: 20190717

REACTIONS (5)
  - Genital hypoaesthesia [None]
  - Depression [None]
  - Constipation [None]
  - Hypoaesthesia [None]
  - Anxiety [None]

NARRATIVE: CASE EVENT DATE: 20190729
